FAERS Safety Report 19559758 (Version 1)
Quarter: 2021Q3

REPORT INFORMATION
  Report Type: Spontaneous
  Country: US (occurrence: US)
  Receive Date: 20210715
  Receipt Date: 20210715
  Transmission Date: 20211014
  Serious: Yes (Hospitalization)
  Sender: FDA-Public Use
  Company Number: None

PATIENT
  Age: 40 Year
  Sex: Female
  Weight: 74.8 kg

DRUGS (2)
  1. ONDANSETRON 4MG IV PUSH [Concomitant]
     Dates: start: 20210713, end: 20210713
  2. CASIRIVIMAB 600 MG + IMDEVIMAB 600 MG [Suspect]
     Active Substance: CASIRIVIMAB\IMDEVIMAB
     Dosage: ?          OTHER FREQUENCY:ONCE;?
     Route: 042

REACTIONS (11)
  - Vomiting [None]
  - Lung infiltration [None]
  - Ageusia [None]
  - Decreased appetite [None]
  - Asthenia [None]
  - Fatigue [None]
  - Nausea [None]
  - Pyrexia [None]
  - SARS-CoV-2 antibody test positive [None]
  - Dyspnoea [None]
  - Cough [None]

NARRATIVE: CASE EVENT DATE: 20210713
